FAERS Safety Report 5838602-8 (Version None)
Quarter: 2008Q3

REPORT INFORMATION
  Report Type: 
  Country: None (occurrence: None)
  Receive Date: 20080808
  Receipt Date: 20080604
  Transmission Date: 20090109
  Serious: No
  Sender: FDA-Public Use
  Company Number: A0729942A

PATIENT
  Age: 5 Year
  Sex: Female

DRUGS (3)
  1. ALTABAX [Suspect]
     Indication: STREPTOCOCCAL INFECTION
     Route: 061
     Dates: start: 20080524, end: 20080525
  2. UNKNOWN MEDICATION [Suspect]
     Dates: start: 20080524
  3. NO CONCURRENT MEDICATION [Concomitant]

REACTIONS (4)
  - APPLICATION SITE IRRITATION [None]
  - APPLICATION SITE PAIN [None]
  - PAIN [None]
  - SCREAMING [None]
